FAERS Safety Report 8228329-X (Version None)
Quarter: 2012Q1

REPORT INFORMATION
  Report Type: 
  Country: None (occurrence: None)
  Receive Date: 20120322
  Receipt Date: 20111019
  Transmission Date: 20120608
  Serious: Yes (Other)
  Sender: FDA-Public Use
  Company Number: US-BRISTOL-MYERS SQUIBB COMPANY-16108888

PATIENT
  Age: 69 Year
  Sex: Male

DRUGS (6)
  1. ZANTAC [Concomitant]
     Indication: PREMEDICATION
  2. ERBITUX [Suspect]
     Indication: TONSIL CANCER
     Route: 042
     Dates: start: 20110928
  3. BENADRYL [Concomitant]
     Indication: PREMEDICATION
     Dosage: AND ALSO TAKEN AS 25 PUSH
  4. DECADRON [Concomitant]
     Indication: PREMEDICATION
  5. TYLENOL [Concomitant]
     Dosage: 1DF:1000 UNIT NOS
  6. ATIVAN [Concomitant]
     Indication: PREMEDICATION

REACTIONS (1)
  - HYPERSENSITIVITY [None]
